FAERS Safety Report 7288626-1 (Version None)
Quarter: 2011Q1

REPORT INFORMATION
  Report Type: 
  Country: None (occurrence: None)
  Receive Date: 20110211
  Receipt Date: 20110204
  Transmission Date: 20110831
  Serious: Yes (Death)
  Sender: FDA-Public Use
  Company Number: AR-BRISTOL-MYERS SQUIBB COMPANY-14406003

PATIENT
  Age: 28 Year
  Sex: Male

DRUGS (6)
  1. ABATACEPT [Suspect]
     Indication: SYSTEMIC LUPUS ERYTHEMATOSUS
     Route: 042
     Dates: start: 20080123, end: 20080903
  2. CALCIUM CARBONATE [Concomitant]
     Dates: start: 20071220, end: 20081109
  3. PREDNISONE [Concomitant]
     Route: 048
     Dates: start: 20080430, end: 20081002
  4. RANITIDINE [Concomitant]
     Dates: start: 20071204, end: 20081109
  5. MYCOPHENOLATE MOFETIL [Concomitant]
     Route: 048
     Dates: start: 20080104, end: 20080930
  6. ENALAPRIL MALEATE [Concomitant]
     Dates: start: 20060910, end: 20081109

REACTIONS (4)
  - PURULENCE [None]
  - PERITONITIS BACTERIAL [None]
  - BLOOD CULTURE POSITIVE [None]
  - HYPOTENSION [None]
